FAERS Safety Report 6136688-7 (Version None)
Quarter: 2009Q1

REPORT INFORMATION
  Report Type: 
  Country: None (occurrence: None)
  Receive Date: 20090330
  Receipt Date: 20090318
  Transmission Date: 20090719
  Serious: Yes (Other)
  Sender: FDA-Public Use
  Company Number: PHHY2009BR10397

PATIENT
  Sex: Female
  Weight: 90 kg

DRUGS (10)
  1. DIOVAN AMLO FIX [Suspect]
     Indication: HYPERTENSION
     Dosage: 320/5 MG WHOLE TABLET
     Dates: start: 20090317
  2. DIOVAN AMLO FIX [Suspect]
     Dosage: 320/5 MG HALF TABLET
  3. DIETHYLPROPION HYDROCHLORIDE TAB [Concomitant]
     Dosage: 1 CAPSULE TWICE A DAY
  4. ALOIN [Concomitant]
  5. CASCARA SAGRADA [Concomitant]
  6. CHLORDIAZEPOXIDE [Concomitant]
  7. FLUOXETINE HYDROCHLORIDE [Concomitant]
  8. FUROSEMIDE [Concomitant]
  9. RANITIDINE HYDROCHLORIDE [Concomitant]
  10. ATENOLOL [Concomitant]
     Dosage: 2 CAPSULES PER DAY

REACTIONS (3)
  - ASTHENIA [None]
  - HYPERSOMNIA [None]
  - HYPOTENSION [None]
